FAERS Safety Report 9570893 (Version 2)
Quarter: 2013Q4

REPORT INFORMATION
  Report Type: Spontaneous
  Country: US (occurrence: US)
  Receive Date: 20131001
  Receipt Date: 20131206
  Transmission Date: 20140711
  Serious: Yes (Life-Threatening, Other)
  Sender: FDA-Public Use
  Company Number: US-BAYER-2013-117073

PATIENT
  Age: 27 Year
  Sex: Female

DRUGS (7)
  1. OCELLA [Suspect]
  2. YAZ [Suspect]
  3. YASMIN [Suspect]
  4. BEYAZ [Suspect]
  5. SAFYRAL [Suspect]
  6. ZARAH [Suspect]
  7. GIANVI [Suspect]
     Dosage: UNK

REACTIONS (9)
  - Thrombophlebitis superficial [Recovered/Resolved]
  - Injury [Recovered/Resolved]
  - Deep vein thrombosis [None]
  - Pain [None]
  - General physical health deterioration [Recovered/Resolved]
  - Anxiety [None]
  - Anhedonia [None]
  - Emotional distress [None]
  - Pain [Recovered/Resolved]
